FAERS Safety Report 6602819-5 (Version None)
Quarter: 2010Q1

REPORT INFORMATION
  Report Type: 
  Country: None (occurrence: None)
  Receive Date: 20100226
  Receipt Date: 20100216
  Transmission Date: 20100710
  Serious: Yes (Hospitalization)
  Sender: FDA-Public Use
  Company Number: US-BIOGENIDEC-2010BI005487

PATIENT
  Age: 38 Year
  Sex: Female

DRUGS (2)
  1. TYSABRI [Suspect]
     Indication: MULTIPLE SCLEROSIS
     Route: 042
     Dates: start: 20070313, end: 20071123
  2. TYSABRI [Suspect]
     Route: 042
     Dates: start: 20080520

REACTIONS (4)
  - CHOLECYSTITIS INFECTIVE [None]
  - CHOLELITHIASIS [None]
  - MIGRAINE [None]
  - MULTIPLE SCLEROSIS [None]
